FAERS Safety Report 6640108-3 (Version None)
Quarter: 2010Q1

REPORT INFORMATION
  Report Type: 
  Country: None (occurrence: None)
  Receive Date: 20100318
  Receipt Date: 20100308
  Transmission Date: 20100710
  Serious: Yes (Hospitalization)
  Sender: FDA-Public Use
  Company Number: JP-ROCHE-684433

PATIENT
  Sex: Female

DRUGS (22)
  1. TOCILIZUMAB [Suspect]
     Indication: RHEUMATOID ARTHRITIS
     Route: 041
     Dates: start: 20080910, end: 20080910
  2. TOCILIZUMAB [Suspect]
     Route: 041
     Dates: start: 20081014, end: 20081014
  3. TOCILIZUMAB [Suspect]
     Route: 041
     Dates: start: 20081112, end: 20081112
  4. TOCILIZUMAB [Suspect]
     Route: 041
     Dates: start: 20081210, end: 20081210
  5. TOCILIZUMAB [Suspect]
     Route: 041
     Dates: start: 20090107, end: 20090107
  6. TOCILIZUMAB [Suspect]
     Route: 041
     Dates: start: 20090204, end: 20090204
  7. TOCILIZUMAB [Suspect]
     Route: 041
     Dates: start: 20090304
  8. TOCILIZUMAB [Suspect]
     Route: 041
     Dates: start: 20090401, end: 20090401
  9. TOCILIZUMAB [Suspect]
     Route: 041
     Dates: start: 20090430, end: 20090430
  10. TOCILIZUMAB [Suspect]
     Route: 041
     Dates: start: 20090603, end: 20090603
  11. TOCILIZUMAB [Suspect]
     Route: 041
     Dates: start: 20090701, end: 20090701
  12. TOCILIZUMAB [Suspect]
     Route: 041
     Dates: start: 20090729, end: 20090729
  13. TOCILIZUMAB [Suspect]
     Route: 041
     Dates: start: 20090826
  14. METHOTREXATE [Concomitant]
     Dosage: DOSE FORM: PERORAL AGENT
     Route: 048
     Dates: end: 20091113
  15. SODIUM AUROTHIOMALATE [Concomitant]
     Dosage: DRUG NAME REPORTED AS SHIOSOL. ROUTE: INTRAVENOUS (NOT OTHERWISE SPECIFIED)
     Route: 042
     Dates: end: 20091116
  16. KENACORT [Concomitant]
     Route: 014
     Dates: start: 20080701, end: 20080701
  17. KENACORT [Concomitant]
     Route: 014
     Dates: start: 20080729, end: 20080729
  18. KENACORT [Concomitant]
     Route: 014
     Dates: start: 20080805, end: 20080805
  19. BONALON [Concomitant]
     Route: 048
     Dates: end: 20100304
  20. MOHRUS [Concomitant]
     Dosage: DOSE FORM: TAPE, DOSAGE ADJUSTED
     Route: 061
  21. DIPHENHYDRAMINE HYDROCHLORIDE [Concomitant]
     Dosage: DRUG REPORTED AS VENASMIN(DIPHENHYDRAMINE HYDROCHLORIDE)
     Route: 030
     Dates: start: 20080910
  22. CELECOXIB [Concomitant]
     Route: 048
     Dates: start: 20091021, end: 20100304

REACTIONS (4)
  - ASPARTATE AMINOTRANSFERASE INCREASED [None]
  - BLOOD CHOLESTEROL INCREASED [None]
  - DIARRHOEA [None]
  - PULMONARY TUBERCULOSIS [None]
